FAERS Safety Report 5247547-6 (Version None)
Quarter: 2007Q1

REPORT INFORMATION
  Report Type: 
  Country: None (occurrence: None)
  Receive Date: 20070227
  Receipt Date: 20070214
  Transmission Date: 20070707
  Serious: Yes (Hospitalization, Other)
  Sender: FDA-Public Use
  Company Number: PHBS2007US02885

PATIENT
  Age: 82 Year
  Sex: Female

DRUGS (7)
  1. VALSARTAN [Suspect]
  2. BUDESONIDE [Suspect]
  3. ACETAMINOPHEN AND OXYCODONE HCL [Suspect]
  4. AMLODIPINE [Suspect]
  5. ATORVASTATIN [Suspect]
  6. ALBUTEROL [Suspect]
  7. HYDROCHLOROTHIAZIDE [Suspect]

REACTIONS (12)
  - ANGIOEDEMA [None]
  - BLOOD PRESSURE INCREASED [None]
  - DYSPHAGIA [None]
  - DYSPNOEA [None]
  - GOUT [None]
  - HEART RATE INCREASED [None]
  - LIP SWELLING [None]
  - LOCAL SWELLING [None]
  - OROPHARYNGEAL SWELLING [None]
  - RASH [None]
  - SWELLING FACE [None]
  - SWOLLEN TONGUE [None]
